FAERS Safety Report 15785839 (Version 1)
Quarter: 2019Q1

REPORT INFORMATION
  Report Type: Report from Study
  Country: NI (occurrence: NI)
  Receive Date: 20190103
  Receipt Date: 20190103
  Transmission Date: 20190417
  Serious: Yes (Other)
  Sender: FDA-Public Use
  Company Number: NI-SA-2019SA000048

PATIENT
  Age: 55 Year
  Sex: Male

DRUGS (2)
  1. INSULIN GLARGINE [Suspect]
     Active Substance: INSULIN GLARGINE
     Indication: DIABETES MELLITUS
     Dosage: 45 IU, BID (IN MORNING AND NIGHT)
     Route: 058
     Dates: start: 2005, end: 201311
  2. APIDRA [Suspect]
     Active Substance: INSULIN GLULISINE
     Indication: DIABETES MELLITUS
     Dosage: 15 IU, BID (IN MORNING AND AT NIGHT)
     Route: 058
     Dates: start: 2013, end: 201311

REACTIONS (3)
  - Cholecystectomy [Unknown]
  - Hyperglycaemia [Recovered/Resolved]
  - Off label use [Unknown]

NARRATIVE: CASE EVENT DATE: 2005
